FAERS Safety Report 7149808-2 (Version None)
Quarter: 2010Q4

REPORT INFORMATION
  Report Type: 
  Country: None (occurrence: None)
  Receive Date: 20101210
  Receipt Date: 20101201
  Transmission Date: 20110411
  Serious: Yes (Hospitalization)
  Sender: FDA-Public Use
  Company Number: US-BIOGENIDEC-2010BI042243

PATIENT
  Age: 54 Year
  Sex: Female

DRUGS (8)
  1. TYSABRI [Suspect]
     Indication: MULTIPLE SCLEROSIS
     Route: 042
     Dates: start: 20100930, end: 20101027
  2. SEROQUEL [Concomitant]
     Indication: INSOMNIA
  3. SEROQUEL [Concomitant]
     Indication: PARANOIA
  4. LORAZEPAM [Concomitant]
     Indication: ANXIETY
  5. TOPAMAX [Concomitant]
     Indication: NEURALGIA
  6. TOPAMAX [Concomitant]
     Indication: ANXIETY
  7. ZANAFLEX [Concomitant]
     Indication: MUSCLE TIGHTNESS
  8. CYMBALTA [Concomitant]
     Indication: DEPRESSION

REACTIONS (3)
  - ANXIETY [None]
  - DEPRESSION [None]
  - URINARY TRACT INFECTION [None]
